FAERS Safety Report 23270426 (Version 1)
Quarter: 2023Q4

REPORT INFORMATION
  Report Type: Spontaneous
  Country: CN (occurrence: None)
  Receive Date: 20231207
  Receipt Date: 20231207
  Transmission Date: 20240110
  Serious: Yes (Death)
  Sender: FDA-Public Use
  Company Number: CN-ROCHE-3465423

PATIENT
  Age: 67 Year
  Sex: Male

DRUGS (4)
  1. AVASTIN [Suspect]
     Active Substance: BEVACIZUMAB
     Indication: Lung adenocarcinoma
     Route: 065
  2. DABRAFENIB [Concomitant]
     Active Substance: DABRAFENIB
     Indication: Lung adenocarcinoma
  3. TRAMETINIB [Concomitant]
     Active Substance: TRAMETINIB
     Indication: Lung adenocarcinoma
  4. CATEQUENTINIB [Concomitant]
     Active Substance: CATEQUENTINIB
     Indication: Lung adenocarcinoma

REACTIONS (2)
  - Disease progression [Unknown]
  - Death [Fatal]

NARRATIVE: CASE EVENT DATE: 20221001
